FAERS Safety Report 6468552-8 (Version None)
Quarter: 2009Q4

REPORT INFORMATION
  Report Type: 
  Country: None (occurrence: None)
  Receive Date: 20091203
  Receipt Date: 20091124
  Transmission Date: 20100525
  Serious: Yes (Disabling)
  Sender: FDA-Public Use
  Company Number: JP-ASTRAZENECA-2009SE26580

PATIENT
  Age: 60 Year
  Sex: Male

DRUGS (8)
  1. CRESTOR [Suspect]
     Indication: HYPERCHOLESTEROLAEMIA
     Route: 048
     Dates: start: 20090428, end: 20090605
  2. CRESTOR [Suspect]
     Route: 048
     Dates: start: 20090824, end: 20091005
  3. METHYCOBAL [Concomitant]
     Dosage: 3TAB/DAY, NUMBER OF SEPARATE DOSES UNKNOWN
     Route: 048
     Dates: start: 20090427
  4. AMARYL [Concomitant]
     Dosage: 1MG X 2TAB/DAY, NUMBER OF SEPARATE DOSES UNKNOWN
     Route: 048
     Dates: start: 20090427
  5. TANATRIL [Concomitant]
     Dosage: 5MG X 2TAB/DAY, NUMBER OF SEPARATE DOSES UNKNOWN
     Route: 048
     Dates: start: 20090430
  6. OPALMON [Concomitant]
     Dosage: 3MG X 3TAB/DAY, NUMBER OF SEPARATE DOSES UNKNOWN
     Route: 048
     Dates: start: 20090430
  7. ASPIRIN [Concomitant]
     Route: 048
     Dates: start: 20090430
  8. CIMETIDINE HCL [Concomitant]
     Route: 048
     Dates: start: 20090430

REACTIONS (6)
  - AMYOTROPHIC LATERAL SCLEROSIS [None]
  - GAIT DISTURBANCE [None]
  - HYPOAESTHESIA [None]
  - MUSCLE ATROPHY [None]
  - MUSCULAR DYSTROPHY [None]
  - MUSCULAR WEAKNESS [None]
